FAERS Safety Report 15611892 (Version 1)
Quarter: 2018Q4

REPORT INFORMATION
  Report Type: Spontaneous
  Country: US (occurrence: US)
  Receive Date: 20181113
  Receipt Date: 20181113
  Transmission Date: 20190205
  Serious: No
  Sender: FDA-Public Use
  Company Number: US-SA-2018SA307535

PATIENT
  Sex: Female

DRUGS (1)
  1. CEREDASE [Suspect]
     Active Substance: ALGLUCERASE
     Indication: GAUCHER^S DISEASE
     Dosage: UNK
     Route: 041
     Dates: start: 19910507, end: 19930629

REACTIONS (1)
  - Pregnancy [Unknown]
